FAERS Safety Report 5165422-2 (Version None)
Quarter: 2006Q4

REPORT INFORMATION
  Report Type: 
  Country: None (occurrence: None)
  Receive Date: 20061206
  Receipt Date: 20061129
  Transmission Date: 20070319
  Serious: Yes (Hospitalization)
  Sender: FDA-Public Use
  Company Number: PL-AVENTIS-200616088EU

PATIENT
  Age: 75 Year
  Sex: Male
  Weight: 62 kg

DRUGS (6)
  1. CLEXANE [Suspect]
     Indication: THROMBOSIS PROPHYLAXIS
     Route: 058
  2. PROPRANOLOL [Concomitant]
  3. METFORMAX                          /00082702/ [Concomitant]
  4. TRAMADOL HCL [Concomitant]
  5. VICALVIT D [Concomitant]
  6. METOCLOPRAMIDE [Concomitant]

REACTIONS (1)
  - EOSINOPHILIA [None]
